FAERS Safety Report 5524857-6 (Version None)
Quarter: 2007Q4

REPORT INFORMATION
  Report Type: 
  Country: None (occurrence: None)
  Receive Date: 20071126
  Receipt Date: 20071113
  Transmission Date: 20080405
  Serious: Yes (Other)
  Sender: FDA-Public Use
  Company Number: GR-JNJFOC-20071007302

PATIENT
  Age: 20 Year
  Sex: Female

DRUGS (3)
  1. INFLIXIMAB [Suspect]
     Indication: CROHN'S DISEASE
     Dosage: 5 MG/KG AT WEEKS 0, 2, 6 AND THEN EVERY 8 WEEKS, 12 INFUSIONS, DATES INSPECIFIED.
     Route: 042
  2. AZATHIOPRINE [Concomitant]
  3. 5-ASA [Concomitant]

REACTIONS (2)
  - DRUG INEFFECTIVE [None]
  - FISTULA [None]
